FAERS Safety Report 19862914 (Version 1)
Quarter: 2021Q3

REPORT INFORMATION
  Report Type: Other
  Country: US (occurrence: US)
  Receive Date: 20210921
  Receipt Date: 20210921
  Transmission Date: 20211014
  Serious: No
  Sender: FDA-Public Use
  Company Number: US-ACORDA-ACO_169566_2021

PATIENT
  Age: 82 Year
  Sex: Female

DRUGS (2)
  1. INBRIJA [Suspect]
     Active Substance: LEVODOPA
     Indication: PARKINSON^S DISEASE
     Dosage: 84 MILLIGRAM, UP TO 5 TIMES DAILY
     Dates: start: 20210116
  2. INBRIJA [Suspect]
     Active Substance: LEVODOPA
     Indication: MOTOR DYSFUNCTION

REACTIONS (2)
  - General physical condition abnormal [Unknown]
  - Drug ineffective [Unknown]

NARRATIVE: CASE EVENT DATE: 20210701
